FAERS Safety Report 16896464 (Version 1)
Quarter: 2019Q4

REPORT INFORMATION
  Report Type: Spontaneous
  Country: IE (occurrence: FR)
  Receive Date: 20191008
  Receipt Date: 20191008
  Transmission Date: 20200122
  Serious: Yes (Other)
  Sender: FDA-Public Use
  Company Number: FR-AKRON, INC.-2075426

PATIENT
  Age: 54 Year
  Sex: Male

DRUGS (6)
  1. AMPHETAMINE [Suspect]
     Active Substance: AMPHETAMINE
  2. COCAINE [Suspect]
     Active Substance: COCAINE
  3. ALCOHOL. [Suspect]
     Active Substance: ALCOHOL
  4. TABAC (POUDRE DE) [Suspect]
     Active Substance: TOBACCO LEAF
  5. MORPHINE SULFATE ORAL SOLUTION [Suspect]
     Active Substance: MORPHINE SULFATE
     Route: 045
  6. BROMAZEPAM [Suspect]
     Active Substance: BROMAZEPAM

REACTIONS (3)
  - Intentional product use issue [Unknown]
  - Drug abuse [Not Recovered/Not Resolved]
  - Cluster headache [Not Recovered/Not Resolved]
